FAERS Safety Report 15694707 (Version 2)
Quarter: 2018Q4

REPORT INFORMATION
  Report Type: Spontaneous
  Country: US (occurrence: US)
  Receive Date: 20181206
  Receipt Date: 20181226
  Transmission Date: 20190205
  Serious: No
  Sender: FDA-Public Use
  Company Number: US-ASTRAZENECA-2018SF53867

PATIENT
  Sex: Female

DRUGS (1)
  1. SYMBICORT [Suspect]
     Active Substance: BUDESONIDE\FORMOTEROL FUMARATE DIHYDRATE
     Indication: ASTHMA
     Dosage: 160/4.5 MCGS PER INHALATION, ONE PUFF TWICE DAILY
     Route: 055

REACTIONS (6)
  - Dysgeusia [Unknown]
  - Product dose omission [Unknown]
  - Wheezing [Unknown]
  - Intentional product misuse [Unknown]
  - Device issue [Unknown]
  - Off label use [Unknown]
